FAERS Safety Report 8532457-9 (Version None)
Quarter: 2012Q3

REPORT INFORMATION
  Report Type: 
  Country: None (occurrence: None)
  Receive Date: 20120716
  Receipt Date: 20120716
  Transmission Date: 20120928
  Serious: Yes (Other)
  Sender: FDA-Public Use
  Company Number: None

PATIENT
  Age: 19 Year
  Sex: Female
  Weight: 52.1637 kg

DRUGS (2)
  1. MUCINEX [Suspect]
     Indication: RESPIRATORY TRACT CONGESTION
     Dosage: EVERY 12 HOURS PO
     Route: 048
     Dates: start: 20120714, end: 20120714
  2. MUCINEX [Suspect]
     Indication: COUGH
     Dosage: EVERY 12 HOURS PO
     Route: 048
     Dates: start: 20120714, end: 20120714

REACTIONS (3)
  - NAUSEA [None]
  - SOMNOLENCE [None]
  - DIZZINESS [None]
